FAERS Safety Report 18991716 (Version 1)
Quarter: 2021Q1

REPORT INFORMATION
  Report Type: Spontaneous
  Country: US (occurrence: US)
  Receive Date: 20210310
  Receipt Date: 20210310
  Transmission Date: 20210420
  Serious: No
  Sender: FDA-Public Use
  Company Number: US-ELI_LILLY_AND_COMPANY-US202102004904

PATIENT
  Sex: Female

DRUGS (2)
  1. HUMULIN R U?500 [Suspect]
     Active Substance: INSULIN HUMAN
     Dosage: 35 U, TID
     Route: 058
  2. HUMULIN R U?500 [Suspect]
     Active Substance: INSULIN HUMAN
     Indication: DIABETES MELLITUS
     Dosage: 50 U, PRN
     Route: 058

REACTIONS (1)
  - Overdose [Unknown]
